FAERS Safety Report 6769501-5 (Version None)
Quarter: 2010Q2

REPORT INFORMATION
  Report Type: 
  Country: None (occurrence: None)
  Receive Date: 20100608
  Receipt Date: 20100526
  Transmission Date: 20101027
  Serious: Yes (Hospitalization)
  Sender: FDA-Public Use
  Company Number: WAES 1004USA04403

PATIENT
  Age: 83 Year
  Sex: Male

DRUGS (15)
  1. FOSAMAX [Suspect]
     Indication: OSTEOPOROSIS
     Dosage: 35 MG/WKY/PO
     Route: 048
     Dates: start: 20080226, end: 20090919
  2. ALFAROL [Concomitant]
  3. ALOSENN [Concomitant]
  4. ARTIST [Concomitant]
  5. ASPIRIN [Concomitant]
  6. CHOREI-TO [Concomitant]
  7. LIVALO [Concomitant]
  8. LOXONIN [Concomitant]
  9. MUCOSTA [Concomitant]
  10. NORVASC [Concomitant]
  11. PURSENNID [Concomitant]
  12. RIZE [Concomitant]
  13. STGMART [Concomitant]
  14. SILECE [Concomitant]
  15. TAKEPRON [Concomitant]

REACTIONS (3)
  - COLONIC POLYP [None]
  - DIZZINESS [None]
  - PRURITUS [None]
